FAERS Safety Report 7621569-X (Version None)
Quarter: 2011Q3

REPORT INFORMATION
  Report Type: 
  Country: None (occurrence: None)
  Receive Date: 20110719
  Receipt Date: 20110623
  Transmission Date: 20111222
  Serious: Yes (Hospitalization, Other)
  Sender: FDA-Public Use
  Company Number: US-BAYER-2011-054347

PATIENT
  Sex: Female

DRUGS (2)
  1. CIPROFLOXACIN HCL [Suspect]
     Dosage: UNK
     Dates: start: 20100101
  2. TIZANIDINE HCL [Suspect]

REACTIONS (2)
  - BIPOLAR DISORDER [None]
  - ABNORMAL BEHAVIOUR [None]
